FAERS Safety Report 8771066 (Version 1)
Quarter: 2012Q4

REPORT INFORMATION
  Report Type: 
  Country: US (occurrence: US)
  Receive Date: 20120906
  Receipt Date: 20120906
  Transmission Date: 20130627
  Serious: Yes (Other)
  Sender: FDA-Public Use
  Company Number: US-PFIZER INC-2012217822

PATIENT
  Age: 49 Year
  Sex: Female
  Weight: 39 kg

DRUGS (1)
  1. CHANTIX [Suspect]
     Dosage: UNK, 2x/day
     Route: 048
     Dates: start: 2006

REACTIONS (2)
  - Osteoporosis [Not Recovered/Not Resolved]
  - Nausea [Recovered/Resolved]
